FAERS Safety Report 14926469 (Version 1)
Quarter: 2018Q2

REPORT INFORMATION
  Report Type: Report from Study
  Country: CN (occurrence: CN)
  Receive Date: 20180523
  Receipt Date: 20180523
  Transmission Date: 20180711
  Serious: Yes (Other)
  Sender: FDA-Public Use
  Company Number: CN-ROCHE-2126959

PATIENT

DRUGS (3)
  1. DEXAMETHASONE. [Concomitant]
     Active Substance: DEXAMETHASONE
     Indication: ALLERGY PROPHYLAXIS
     Route: 042
  2. RITUXIMAB. [Suspect]
     Active Substance: RITUXIMAB
     Indication: AUTOIMMUNE DISORDER
     Route: 042
  3. PROMETHAZINE HYDROCHLORIDE. [Concomitant]
     Active Substance: PROMETHAZINE HYDROCHLORIDE
     Indication: ALLERGY PROPHYLAXIS
     Dosage: ONCE, 30MIN BEFORE USE RITUXIMAB
     Route: 030

REACTIONS (3)
  - Hypoxia [Recovered/Resolved]
  - Off label use [Unknown]
  - Intentional product use issue [Unknown]
